FAERS Safety Report 7562857-5 (Version None)
Quarter: 2011Q2

REPORT INFORMATION
  Report Type: 
  Country: None (occurrence: None)
  Receive Date: 20110615
  Receipt Date: 20110531
  Transmission Date: 20111010
  Serious: Yes (Hospitalization)
  Sender: FDA-Public Use
  Company Number: AMAG201100117

PATIENT
  Age: 79 Year
  Sex: Male
  Weight: 94.8 kg

DRUGS (1)
  1. FERAHEME [Suspect]
     Indication: ANAEMIA OF CHRONIC DISEASE
     Dosage: 510 MG, SINGLE, INTRAVENOUS
     Route: 042
     Dates: start: 20110418, end: 20110418

REACTIONS (6)
  - FEELING HOT [None]
  - RESPIRATORY FAILURE [None]
  - DIZZINESS [None]
  - BACK PAIN [None]
  - HYPERTENSION [None]
  - ANXIETY [None]
